FAERS Safety Report 10528110 (Version 2)
Quarter: 2014Q4

REPORT INFORMATION
  Report Type: Spontaneous
  Country: ES (occurrence: None)
  Receive Date: 20141016
  Receipt Date: 20141024
  Transmission Date: 20150528
  Serious: Yes (Other)
  Sender: FDA-Public Use
  Company Number: FK201404043

PATIENT
  Age: 75 Year
  Sex: Male

DRUGS (3)
  1. IOHEXOL(IOHEXOL)(IOHEXOL) [Suspect]
     Active Substance: IOHEXOL
     Indication: COLORECTAL CANCER METASTATIC
     Dosage: CYCLICAL
  2. CAPECITABINE(CAPECITABINE) [Concomitant]
  3. OXALIPLATIN (MANUFACTURER UKNOWN)(OXALIPLATIN)(OXALIPLATIN) [Suspect]
     Active Substance: OXALIPLATIN
     Indication: COLORECTAL CANCER METASTATIC
     Dosage: CYCLICAL

REACTIONS (1)
  - Drug reaction with eosinophilia and systemic symptoms [None]
